FAERS Safety Report 16825982 (Version 7)
Quarter: 2019Q4

REPORT INFORMATION
  Report Type: Spontaneous
  Country: US (occurrence: US)
  Receive Date: 20190919
  Receipt Date: 20191219
  Transmission Date: 20200122
  Serious: Yes (Disabling, Other)
  Sender: FDA-Public Use
  Company Number: US-GILEAD-2019-0429005

PATIENT
  Age: 74 Year
  Sex: Male
  Weight: 88.44 kg

DRUGS (1)
  1. EPCLUSA [Suspect]
     Active Substance: SOFOSBUVIR\VELPATASVIR
     Indication: HEPATITIS C
     Dosage: 1 DOSAGE FORM, QD
     Route: 048
     Dates: start: 20190830, end: 20191023

REACTIONS (9)
  - Pain [Unknown]
  - Cough [Recovered/Resolved]
  - Constipation [Unknown]
  - Sitting disability [Not Recovered/Not Resolved]
  - Oropharyngeal pain [Not Recovered/Not Resolved]
  - Intentional product misuse [Recovering/Resolving]
  - Hyperhidrosis [Recovered/Resolved]
  - Decreased appetite [Recovering/Resolving]
  - Dyspepsia [Unknown]

NARRATIVE: CASE EVENT DATE: 20190916
